FAERS Safety Report 16698205 (Version 1)
Quarter: 2019Q3

REPORT INFORMATION
  Report Type: Spontaneous
  Country: RU (occurrence: RU)
  Receive Date: 20190813
  Receipt Date: 20190813
  Transmission Date: 20191004
  Serious: Yes (Hospitalization, Other)
  Sender: FDA-Public Use
  Company Number: RU-APOTEX-2019AP019994

PATIENT
  Age: 45 Year
  Sex: Male

DRUGS (1)
  1. DOXYCYCLINE. [Suspect]
     Active Substance: DOXYCYCLINE
     Indication: RESPIRATORY TRACT INFECTION VIRAL
     Dosage: UNK
     Route: 065
     Dates: start: 201701

REACTIONS (2)
  - Dermatitis exfoliative generalised [Recovering/Resolving]
  - Psoriasis [Recovering/Resolving]
